FAERS Safety Report 8199723-0 (Version None)
Quarter: 2012Q1

REPORT INFORMATION
  Report Type: 
  Country: None (occurrence: None)
  Receive Date: 20120311
  Receipt Date: 20120305
  Transmission Date: 20120608
  Serious: Yes (Hospitalization)
  Sender: FDA-Public Use
  Company Number: PHEH2012US005186

PATIENT
  Sex: Female

DRUGS (3)
  1. EXJADE [Suspect]
     Indication: LYMPHATIC SYSTEM NEOPLASM
  2. EXJADE [Suspect]
     Indication: HAEMATOPOIETIC NEOPLASM
     Dosage: 500 MG, BID
     Route: 048
     Dates: start: 20110101
  3. EXJADE [Suspect]
     Indication: IRON METABOLISM DISORDER

REACTIONS (1)
  - PNEUMONIA [None]
